FAERS Safety Report 8649478 (Version 2)
Quarter: 2013Q2

REPORT INFORMATION
  Report Type: Spontaneous
  Country: US (occurrence: US)
  Receive Date: 20120705
  Receipt Date: 20130403
  Transmission Date: 20140414
  Serious: Yes (Hospitalization)
  Sender: FDA-Public Use
  Company Number: US-BAYER-2012-064899

PATIENT
  Age: 24 Year
  Sex: Female
  Weight: 65.76 kg

DRUGS (11)
  1. YAZ [Suspect]
     Indication: CONTRACEPTION
     Dosage: UNK
     Dates: start: 2007, end: 2008
  2. YASMIN [Suspect]
     Indication: CONTRACEPTION
     Dosage: UNK
     Dates: start: 2007, end: 2008
  3. MOTRIN [Concomitant]
     Indication: INFLAMMATION
     Dosage: UNK
     Dates: start: 2003
  4. MACROBID [Concomitant]
  5. MACRODANTIN [Concomitant]
     Indication: URINARY TRACT INFECTION
     Dosage: UNK
     Dates: start: 2007
  6. ACCUTANE [Concomitant]
     Dosage: UNK
     Dates: start: 2007
  7. ACCUTANE [Concomitant]
     Dosage: UNK
     Dates: start: 2008
  8. DILAUDID [Concomitant]
     Indication: PAIN
  9. ZOFRAN [Concomitant]
  10. CIPRO [Concomitant]
  11. FLAGYL [Concomitant]

REACTIONS (7)
  - Gallbladder disorder [None]
  - Cholecystitis acute [None]
  - Injury [None]
  - Pain [None]
  - Anxiety [None]
  - Emotional distress [None]
  - Psychological trauma [None]
